FAERS Safety Report 10533857 (Version 4)
Quarter: 2015Q2

REPORT INFORMATION
  Report Type: Spontaneous
  Country: FR (occurrence: FR)
  Receive Date: 20141022
  Receipt Date: 20150504
  Transmission Date: 20150821
  Serious: Yes (Hospitalization, Other)
  Sender: FDA-Public Use
  Company Number: FR-009507513-1410FRA010209

PATIENT
  Age: 10 Year
  Sex: Male
  Weight: 29 kg

DRUGS (12)
  1. VINCRISTINE SULFATE. [Concomitant]
     Active Substance: VINCRISTINE SULFATE
     Dosage: TOTAL DAILY DOSE 1.5MG/M2, FORMULATION IV
     Dates: start: 20140926
  2. ETOPOPHOS [Concomitant]
     Active Substance: ETOPOSIDE PHOSPHATE
     Dosage: TOTAL DAILY DOSE 150MG/M2, FORMULATION IV
     Dates: start: 20140926, end: 20140928
  3. EMEND [Suspect]
     Active Substance: APREPITANT
     Dosage: 125 MG ON DAY 1
     Route: 048
  4. MESNA. [Concomitant]
     Active Substance: MESNA
     Dosage: MESNA EG, FORMULATION IV
     Dates: start: 20140926, end: 20140928
  5. PLITICAN [Concomitant]
     Active Substance: ALIZAPRIDE HYDROCHLORIDE
     Dosage: FORMULATION IV
     Dates: start: 20140926, end: 20140929
  6. IFOSFAMIDE. [Suspect]
     Active Substance: IFOSFAMIDE
     Dosage: 1000 MG
  7. DOXORUBICIN HYDROCHLORIDE. [Concomitant]
     Active Substance: DOXORUBICIN HYDROCHLORIDE
     Dosage: TOTAL DAILY DOSE 20 MG/M2, FORMULATION IV
     Route: 042
     Dates: start: 20140926, end: 20140928
  8. DEXAMETHASONE. [Concomitant]
     Active Substance: DEXAMETHASONE
     Dosage: FORMULATION IV
     Route: 042
     Dates: start: 20140926, end: 20140929
  9. ZOPHREN (ONDANSETRON HYDROCHLORIDE) [Concomitant]
     Active Substance: ONDANSETRON HYDROCHLORIDE
     Dosage: FORMULATION IV
     Dates: start: 20140926, end: 20140929
  10. EMEND [Suspect]
     Active Substance: APREPITANT
     Indication: PROPHYLAXIS OF NAUSEA AND VOMITING
     Dosage: 80 MG, QD
     Route: 048
     Dates: start: 20140926, end: 20140928
  11. IFOSFAMIDE. [Suspect]
     Active Substance: IFOSFAMIDE
     Dosage: DAILY DOSE: 3000 MG/M2, DAY 1,2,3 INFUSION OF 3 HOURS
     Route: 042
     Dates: start: 20140926, end: 20140928
  12. IFOSFAMIDE. [Suspect]
     Active Substance: IFOSFAMIDE
     Dosage: 2000 MG

REACTIONS (1)
  - Encephalopathy [Recovered/Resolved]

NARRATIVE: CASE EVENT DATE: 20140928
